FAERS Safety Report 18530563 (Version 3)
Quarter: 2021Q2

REPORT INFORMATION
  Report Type: Report from Study
  Country: None (occurrence: US)
  Receive Date: 20201121
  Receipt Date: 20210415
  Transmission Date: 20210717
  Serious: Yes (Other)
  Sender: FDA-Public Use
  Company Number: US-ABBVIE-20K-163-3601026-00

PATIENT
  Sex: Female
  Weight: 79.9 kg

DRUGS (1)
  1. RINVOQ [Suspect]
     Active Substance: UPADACITINIB
     Indication: RHEUMATOID ARTHRITIS
     Route: 048
     Dates: start: 201912

REACTIONS (4)
  - Hernia [Not Recovered/Not Resolved]
  - Arthropod bite [Unknown]
  - Fibromyalgia [Not Recovered/Not Resolved]
  - Hepatic enzyme increased [Unknown]
